FAERS Safety Report 8220099-4 (Version None)
Quarter: 2012Q1

REPORT INFORMATION
  Report Type: 
  Country: None (occurrence: None)
  Receive Date: 20120320
  Receipt Date: 20120312
  Transmission Date: 20120608
  Serious: Yes (Hospitalization)
  Sender: FDA-Public Use
  Company Number: US-BIOGENIDEC-2011BI034739

PATIENT
  Sex: Female

DRUGS (3)
  1. AVONEX [Suspect]
     Route: 030
     Dates: start: 20110817
  2. COPAXONE [Concomitant]
  3. AVONEX [Suspect]
     Indication: MULTIPLE SCLEROSIS
     Route: 030
     Dates: start: 20040720, end: 20100801

REACTIONS (5)
  - MULTIPLE SCLEROSIS RELAPSE [None]
  - THYROID DISORDER [None]
  - DIABETES MELLITUS [None]
  - NECROTISING FASCIITIS [None]
  - ASTHENIA [None]
